FAERS Safety Report 12433046 (Version 1)
Quarter: 2016Q2

REPORT INFORMATION
  Report Type: Spontaneous
  Country: FI (occurrence: FI)
  Receive Date: 20160603
  Receipt Date: 20160603
  Transmission Date: 20160815
  Serious: Yes (Other)
  Sender: FDA-Public Use
  Company Number: FI-009507513-1512FIN006508

PATIENT
  Age: 25 Year
  Sex: Female

DRUGS (1)
  1. NEXPLANON [Suspect]
     Active Substance: ETONOGESTREL
     Dosage: UNK
     Route: 059
     Dates: start: 2012, end: 20160419

REACTIONS (6)
  - Complication associated with device [Recovered/Resolved]
  - General anaesthesia [Unknown]
  - Incorrect drug administration duration [Unknown]
  - Vaginal haemorrhage [Unknown]
  - Complication of device removal [Recovered/Resolved]
  - Device difficult to use [Recovered/Resolved]

NARRATIVE: CASE EVENT DATE: 2015
